FAERS Safety Report 22845166 (Version 6)
Quarter: 2024Q3

REPORT INFORMATION
  Report Type: Spontaneous
  Country: US (occurrence: US)
  Receive Date: 20230821
  Receipt Date: 20240702
  Transmission Date: 20241017
  Serious: Yes (Disabling, Other)
  Sender: AMGEN
  Company Number: US-HORIZON THERAPEUTICS-HZN-2023-006267

PATIENT
  Age: 70 Year
  Sex: Female
  Weight: 63.2 kg

DRUGS (42)
  1. TEPEZZA [Suspect]
     Active Substance: TEPROTUMUMAB-TRBW
     Indication: Endocrine ophthalmopathy
     Dosage: 1250 MILLIGRAM, Q3WK (FIRST ROUND)
     Route: 042
     Dates: start: 202002, end: 202007
  2. TEPEZZA [Suspect]
     Active Substance: TEPROTUMUMAB-TRBW
     Dosage: 625 MG, 1ST INFUSION (SECOND ROUND)
     Route: 042
     Dates: start: 20210924
  3. TEPEZZA [Suspect]
     Active Substance: TEPROTUMUMAB-TRBW
     Dosage: 1250 MG, 2ND INFUSION (SECOND ROUND)
     Route: 042
     Dates: start: 20211015
  4. TEPEZZA [Suspect]
     Active Substance: TEPROTUMUMAB-TRBW
     Dosage: 1250 MG, 3RD INFUSION (SECOND ROUND)
     Route: 042
     Dates: start: 20211105
  5. TEPEZZA [Suspect]
     Active Substance: TEPROTUMUMAB-TRBW
     Dosage: 1250 MG, 4TH INFUSION (SECOND ROUND)
     Route: 042
     Dates: start: 20211126
  6. TEPEZZA [Suspect]
     Active Substance: TEPROTUMUMAB-TRBW
     Dosage: 1250 MG, 5TH INFUSION (SECOND ROUND)
     Route: 042
     Dates: start: 20211217
  7. TEPEZZA [Suspect]
     Active Substance: TEPROTUMUMAB-TRBW
     Dosage: 1250 MG, 6TH INFUSION (SECOND ROUND)
     Route: 042
     Dates: start: 20220107
  8. TEPEZZA [Suspect]
     Active Substance: TEPROTUMUMAB-TRBW
     Dosage: 1250 MG, 7TH INFUSION (SECOND ROUND)
     Route: 042
     Dates: start: 20220128
  9. TEPEZZA [Suspect]
     Active Substance: TEPROTUMUMAB-TRBW
     Dosage: 1250 MG, 8TH INFUSION (SECOND ROUND)
     Route: 042
     Dates: start: 20220218
  10. AMLODIPINE [Concomitant]
     Active Substance: AMLODIPINE BESYLATE
     Indication: Hypertension
     Dosage: FIRST DOSE
     Route: 048
     Dates: start: 20220204
  11. PRAVASTATIN [Concomitant]
     Active Substance: PRAVASTATIN
     Indication: Blood cholesterol increased
     Dosage: FIRST DOSE
     Route: 048
     Dates: start: 20220203
  12. LEVOTHYROXINE [Concomitant]
     Active Substance: LEVOTHYROXINE\LEVOTHYROXINE SODIUM
     Dosage: FIRST DOSE
     Route: 048
     Dates: start: 20220119
  13. CITALOPRAM HYDROBROMIDE [Concomitant]
     Active Substance: CITALOPRAM HYDROBROMIDE
     Dosage: FIRST DOSE
     Route: 048
     Dates: start: 20211116
  14. ATIVAN [Concomitant]
     Active Substance: LORAZEPAM
     Indication: Anxiety
     Dosage: FIRST DOSE
     Route: 048
     Dates: start: 20210818
  15. DEXILANT [Concomitant]
     Active Substance: DEXLANSOPRAZOLE
     Dosage: FIRST DOSE
     Route: 048
     Dates: start: 20220218
  16. PROPOFOL [Concomitant]
     Active Substance: PROPOFOL
     Dosage: UNK
     Route: 042
     Dates: start: 20200309
  17. LACTATED RINGERS SOLUTION [Concomitant]
     Active Substance: CALCIUM CHLORIDE\POTASSIUM CHLORIDE\SODIUM CHLORIDE\SODIUM LACTATE
     Dosage: UNK
     Dates: start: 20200309
  18. LIDOCAINE [Concomitant]
     Active Substance: LIDOCAINE
     Dosage: UNK
     Route: 042
     Dates: start: 20200309
  19. RABEPRAZOLE SODIUM [Concomitant]
     Active Substance: RABEPRAZOLE SODIUM
     Dosage: UNK
     Dates: start: 20200624
  20. VITAMIN D3 [Concomitant]
     Active Substance: CHOLECALCIFEROL
     Dosage: UNK
     Dates: start: 20200624
  21. SELENIUM [Concomitant]
     Active Substance: SELENIUM
     Dosage: UNK
     Dates: start: 20200624
  22. PREDNISONE [Concomitant]
     Active Substance: PREDNISONE
     Dosage: UNK
     Dates: start: 20201023
  23. ZOFRAN [Concomitant]
     Active Substance: ONDANSETRON HYDROCHLORIDE
  24. ERYTHROMYCIN [Concomitant]
     Active Substance: ERYTHROMYCIN
     Dosage: UNK
  25. ATORVASTATIN [Concomitant]
     Active Substance: ATORVASTATIN
  26. APRISO [Concomitant]
     Active Substance: MESALAMINE
  27. SUCRALFATE [Concomitant]
     Active Substance: SUCRALFATE
  28. DIPHENHYDRAMINE [Concomitant]
     Active Substance: DIPHENHYDRAMINE
  29. PANTOPRAZOLE [Concomitant]
     Active Substance: PANTOPRAZOLE
     Dosage: UNK UNK, BID
  30. BENZOCAINE HCL [Concomitant]
     Dosage: UNK UNK, QD
  31. LIPITOR [Concomitant]
     Active Substance: ATORVASTATIN CALCIUM
     Dosage: UNK UNK, QD
     Route: 048
  32. SYNTHROID [Concomitant]
     Active Substance: LEVOTHYROXINE SODIUM
     Dosage: UNK UNK, QD
     Route: 048
  33. INFLUENZA VIRUS VACCINE [Concomitant]
     Active Substance: INFLUENZA VIRUS VACCINE
     Dosage: 0.7 ML
     Route: 030
     Dates: start: 20221019
  34. INFLUENZA VIRUS VACCINE [Concomitant]
     Active Substance: INFLUENZA VIRUS VACCINE
     Dosage: 0.5 ML
     Dates: start: 20210920
  35. INFLUENZA VIRUS VACCINE [Concomitant]
     Active Substance: INFLUENZA VIRUS VACCINE
     Dosage: 0.7 ML
     Route: 030
     Dates: start: 20220924
  36. INFLUENZA VIRUS VACCINE [Concomitant]
     Active Substance: INFLUENZA VIRUS VACCINE
     Dosage: 0.5 ML
     Route: 030
     Dates: start: 20230918
  37. UNSPECIFIED INGREDIENT [Concomitant]
     Active Substance: UNSPECIFIED INGREDIENT
     Dosage: UNK
     Route: 030
     Dates: start: 20230918
  38. ELASOMERAN [Concomitant]
     Active Substance: ELASOMERAN
     Dosage: 0.5 ML
     Route: 030
     Dates: start: 20210312
  39. PFIZER-BIONTECH COVID-19 VACCINE [Concomitant]
     Active Substance: TOZINAMERAN
     Dosage: 0.3 ML
     Route: 030
     Dates: start: 20211022
  40. PFIZER-BIONTECH COVID-19 VACCINE [Concomitant]
     Active Substance: TOZINAMERAN
     Dosage: 0.3 ML
     Route: 030
     Dates: start: 20220401
  41. COVID-19 vaccine mRNA [Concomitant]
     Dosage: 0.3 ML, BIVAL BOOST
     Route: 030
     Dates: start: 20220924
  42. COVID-19 vaccine mRNA [Concomitant]
     Dosage: 0.5 ML
     Route: 030
     Dates: start: 20231018

REACTIONS (36)
  - Physical disability [Not Recovered/Not Resolved]
  - Disability [Not Recovered/Not Resolved]
  - Deafness neurosensory [Not Recovered/Not Resolved]
  - Craniofacial fracture [Unknown]
  - Auditory disorder [Not Recovered/Not Resolved]
  - Pain [Not Recovered/Not Resolved]
  - Injury [Not Recovered/Not Resolved]
  - Anxiety [Not Recovered/Not Resolved]
  - Concomitant disease aggravated [Not Recovered/Not Resolved]
  - Discomfort [Not Recovered/Not Resolved]
  - Impaired quality of life [Not Recovered/Not Resolved]
  - Emotional distress [Not Recovered/Not Resolved]
  - Abdominal discomfort [Unknown]
  - Weight increased [Unknown]
  - Arthralgia [Unknown]
  - Eye pain [Unknown]
  - Haemoptysis [Unknown]
  - Ear pruritus [Unknown]
  - Visual impairment [Unknown]
  - Abdominal pain [Unknown]
  - Constipation [Unknown]
  - Dizziness [Unknown]
  - Stress [Unknown]
  - Nasal dryness [Unknown]
  - Dysuria [Not Recovered/Not Resolved]
  - Chest pain [Unknown]
  - Diplopia [Recovered/Resolved]
  - Weight decreased [Unknown]
  - Headache [Unknown]
  - Fatigue [Not Recovered/Not Resolved]
  - Tinnitus [Not Recovered/Not Resolved]
  - Product quality issue [Unknown]
  - Economic problem [Not Recovered/Not Resolved]
  - Fall [Unknown]
  - Nasal discomfort [Unknown]
  - Off label use [Unknown]

NARRATIVE: CASE EVENT DATE: 20200519
